FAERS Safety Report 20880590 (Version 1)
Quarter: 2022Q2

REPORT INFORMATION
  Report Type: Spontaneous
  Country: IN (occurrence: IN)
  Receive Date: 20220526
  Receipt Date: 20220526
  Transmission Date: 20220721
  Serious: Yes (Other)
  Sender: FDA-Public Use
  Company Number: IN-GILEAD-2022-0582890

PATIENT
  Age: 14 Day

DRUGS (1)
  1. VEKLURY [Suspect]
     Active Substance: REMDESIVIR
     Indication: COVID-19
     Dosage: 5 MG/KG, QD (ONE DOSE RECEIVED)
     Route: 065

REACTIONS (1)
  - Liver injury [Recovered/Resolved]
